FAERS Safety Report 6871816-7 (Version None)
Quarter: 2010Q3

REPORT INFORMATION
  Report Type: 
  Country: None (occurrence: None)
  Receive Date: 20100723
  Receipt Date: 20100719
  Transmission Date: 20110219
  Serious: Yes (Hospitalization)
  Sender: FDA-Public Use
  Company Number: B0665991A

PATIENT
  Sex: Female

DRUGS (6)
  1. RANITIDINE HCL [Suspect]
     Indication: PREMEDICATION
     Dosage: 50MG CYCLIC
     Route: 042
     Dates: start: 20100507
  2. PACLITAXEL [Suspect]
     Route: 042
     Dates: start: 20100507, end: 20100525
  3. CARBOPLATIN [Suspect]
     Route: 042
     Dates: start: 20100507
  4. ONDANSETRON [Suspect]
     Indication: PREMEDICATION
     Dosage: 8MG CYCLIC
     Route: 042
     Dates: start: 20100507
  5. METHYLPREDNISOLONE [Suspect]
     Indication: PREMEDICATION
     Dosage: 120MG CYCLIC
     Route: 042
     Dates: start: 20100507
  6. POLARAMINE [Suspect]
     Indication: PREMEDICATION
     Dosage: 5MG CYCLIC
     Route: 042
     Dates: start: 20100507

REACTIONS (4)
  - ABDOMINAL PAIN [None]
  - ABSCESS INTESTINAL [None]
  - COLITIS ISCHAEMIC [None]
  - RECTAL HAEMORRHAGE [None]
